FAERS Safety Report 14602177 (Version 3)
Quarter: 2020Q1

REPORT INFORMATION
  Report Type: Report from Study
  Country: BR (occurrence: BR)
  Receive Date: 20180306
  Receipt Date: 20200109
  Transmission Date: 20200409
  Serious: Yes (Other)
  Sender: FDA-Public Use
  Company Number: BR-ROCHE-2082456

PATIENT
  Age: 38 Year
  Sex: Female
  Weight: 69 kg

DRUGS (4)
  1. XOLAIR [Suspect]
     Active Substance: OMALIZUMAB
     Indication: URTICARIA
     Route: 058
     Dates: start: 20170603
  2. MICARDIS HCT [Concomitant]
     Active Substance: HYDROCHLOROTHIAZIDE\TELMISARTAN
     Indication: HYPERTENSION
     Dosage: 1 DF (80/12.5 MG), QD (1 YEAR AND A HALF AGO)
     Route: 048
  3. XOLAIR [Suspect]
     Active Substance: OMALIZUMAB
     Route: 058
     Dates: start: 20180119
  4. LORATADINE. [Concomitant]
     Active Substance: LORATADINE
     Indication: URTICARIA
     Dosage: (TWO YEARS AGO)
     Route: 065

REACTIONS (15)
  - Agitation [Unknown]
  - Fluid retention [Not Recovered/Not Resolved]
  - Pruritus [Recovering/Resolving]
  - Skin plaque [Recovering/Resolving]
  - Rash [Recovered/Resolved]
  - Skin oedema [Recovered/Resolved]
  - Weight increased [Not Recovered/Not Resolved]
  - Blister [Recovering/Resolving]
  - Pustule [Recovering/Resolving]
  - Urticaria [Recovering/Resolving]
  - Aphonia [Unknown]
  - Oedema [Not Recovered/Not Resolved]
  - Feeling hot [Recovered/Resolved]
  - Skin discolouration [Recovered/Resolved]
  - Swelling [Recovered/Resolved]

NARRATIVE: CASE EVENT DATE: 20190828
